FAERS Safety Report 5315300-0 (Version None)
Quarter: 2007Q2

REPORT INFORMATION
  Report Type: 
  Country: None (occurrence: None)
  Receive Date: 20070502
  Receipt Date: 20070420
  Transmission Date: 20071010
  Serious: Yes (Death)
  Sender: FDA-Public Use
  Company Number: US-PFIZER INC-2007032681

PATIENT
  Age: 51 Year
  Sex: Female
  Weight: 89.2 kg

DRUGS (1)
  1. SUTENT [Suspect]
     Indication: RENAL CELL CARCINOMA STAGE UNSPECIFIED
     Route: 048
     Dates: start: 20070205, end: 20070220

REACTIONS (2)
  - CARDIAC DISORDER [None]
  - CARDIOGENIC SHOCK [None]
